FAERS Safety Report 21167961 (Version 1)
Quarter: 2022Q3

REPORT INFORMATION
  Report Type: Spontaneous
  Country: SE (occurrence: SE)
  Receive Date: 20220803
  Receipt Date: 20220803
  Transmission Date: 20221027
  Serious: Yes (Hospitalization)
  Sender: FDA-Public Use
  Company Number: None

PATIENT
  Age: 56 Year
  Sex: Female

DRUGS (2)
  1. OXYCODONE [Suspect]
     Active Substance: OXYCODONE
     Indication: Product used for unknown indication
     Route: 065
     Dates: start: 202207, end: 202207
  2. ACETAMINOPHEN [Suspect]
     Active Substance: ACETAMINOPHEN
     Indication: Product used for unknown indication
     Dosage: SUSPICION OF ^DEPOT^
     Route: 065
     Dates: start: 202207, end: 202207

REACTIONS (14)
  - Acute kidney injury [Recovering/Resolving]
  - Hepatic encephalopathy [Recovering/Resolving]
  - Metabolic encephalopathy [Unknown]
  - Hypovolaemia [Recovered/Resolved]
  - Pneumonia aspiration [Recovering/Resolving]
  - Intentional self-injury [Unknown]
  - Acute on chronic liver failure [Recovering/Resolving]
  - Pancreatitis [Unknown]
  - Depressed level of consciousness [Recovering/Resolving]
  - Atrial fibrillation [Recovered/Resolved]
  - Toxicity to various agents [Unknown]
  - Vomiting [Unknown]
  - Rhabdomyolysis [Unknown]
  - Intentional overdose [Unknown]

NARRATIVE: CASE EVENT DATE: 20220701
